FAERS Safety Report 8074200-6 (Version None)
Quarter: 2012Q1

REPORT INFORMATION
  Report Type: 
  Country: None (occurrence: None)
  Receive Date: 20120126
  Receipt Date: 20120121
  Transmission Date: 20120608
  Serious: Yes (Hospitalization)
  Sender: FDA-Public Use
  Company Number: US-PFIZER INC-2011292723

PATIENT
  Age: 56 Year
  Sex: Female
  Weight: 60.8 kg

DRUGS (36)
  1. ASCORBIC ACID [Concomitant]
     Dosage: 500 MG, 1X/DAY
     Route: 048
  2. LANOLIN [Concomitant]
     Dosage: AS NEEDED
  3. ZOLINZA [Suspect]
     Indication: ACUTE MYELOID LEUKAEMIA
     Dosage: 400 MG, ON DAYS 1-9
     Route: 048
     Dates: start: 20111107, end: 20111113
  4. PREDNISONE [Concomitant]
     Dosage: 20 MG, 1X/DAY
     Route: 048
  5. MORPHINE [Concomitant]
     Dosage: 1.5 MG, EVERY HOUR AS NEEDED
     Route: 042
  6. MULTI-VITAMINS [Concomitant]
     Dosage: DAILY
     Route: 048
  7. MYLOTARG [Suspect]
     Indication: ACUTE MYELOID LEUKAEMIA
     Dosage: 3 MG/M2, ON DAYS 4 AND 8
     Route: 042
     Dates: start: 20111110, end: 20111110
  8. MIRALAX [Concomitant]
     Dosage: DAILY, AS NEEDED
     Route: 048
  9. IPRATROPIUM [Concomitant]
     Dosage: 0.5 MG, EVERY 8
  10. MAGNESIUM HYDROXIDE [Concomitant]
     Dosage: 30 ML, DAILY AS NEEDED
     Route: 048
  11. PROCHLORPERAZINE [Concomitant]
     Dosage: 10 MG, DAILY AS NEEDED
     Route: 048
  12. EUCERIN [Concomitant]
     Dosage: AS NEEDED
     Route: 061
  13. ONDANSETRON HCL [Concomitant]
     Dosage: EVERY 8 HOURS
     Route: 048
  14. LOPERAMIDE [Concomitant]
     Dosage: 2 MG, EVERY 3 HOURS
  15. CHLORHEXIDINE GLUCONATE [Concomitant]
     Dosage: 2 %, Q HS
     Route: 061
  16. DALTEPARIN SODIUM [Concomitant]
     Dosage: 2.5 MG, EVERY 8 HOURS
  17. DOCUSATE [Concomitant]
     Dosage: 200 MG, 1X/DAY
     Route: 048
  18. VIDAZA [Suspect]
     Indication: ACUTE MYELOID LEUKAEMIA
     Dosage: 75 MG/M2/DAY ON DAYS 1-7
     Dates: start: 20111107, end: 20111113
  19. METOPROLOL [Concomitant]
     Dosage: 37.5 MG, EVERY 12 HOURS
     Route: 048
  20. LEVOFLOXACIN [Concomitant]
     Dosage: 750 MG, QHS
     Route: 048
  21. OMEPRAZOLE [Concomitant]
     Dosage: 20 MG, 1X/DAY
  22. LORAZEPAM [Concomitant]
     Dosage: 0.5 MG, EVERY 4 HOURS AS NEEDED
  23. OXYCODONE [Concomitant]
     Dosage: 5 MG, EVERY 4 HOURS AS NEEDED
  24. SENNA [Concomitant]
     Indication: CONSTIPATION
     Dosage: HS AS NEEDED
     Route: 048
  25. BENADRYL [Concomitant]
     Indication: NAUSEA
  26. ALBUTEROL [Concomitant]
     Dosage: 2.5 MG, EVERY 8 HOURS
  27. ACETAMINOPHEN [Concomitant]
     Dosage: EVERY 4 HOURS AS NEEDED
     Route: 048
  28. VITAMIN D [Concomitant]
     Dosage: 50000 IU, WEEKLY
     Route: 048
  29. ACYCLOVIR [Concomitant]
     Dosage: 800 MG, 2X/DAY
     Route: 048
  30. BENADRYL [Concomitant]
     Indication: PRURITUS
     Dosage: 25 MG, EVERY 6 HOURS AS NEEDED
     Route: 048
  31. FLUCONAZOLE [Concomitant]
     Dosage: DAILY
     Route: 048
  32. ALUMINUM PHOSPHATE GEL/MAGNESIUM HYDROXIDE/SIMETHICONE [Concomitant]
     Dosage: EVERY 4 HOURS AS NEEEDED
     Route: 048
  33. HYPROMELLOSE [Concomitant]
     Dosage: 1 DROP EACH EYE EVERY HOUR AS NEEDED
     Route: 047
  34. LORAZEPAM [Concomitant]
     Dosage: 0.5-1 MG, EVERY 4 HOURS AS NEEDED
     Route: 042
  35. METOCLOPRAMIDE [Concomitant]
     Dosage: 10 MG, Q 6 HOURS AS NEEDED
     Route: 042
  36. MAGNESIUM CITRATE [Concomitant]
     Indication: CONSTIPATION
     Dosage: AS NEEDED
     Route: 048

REACTIONS (4)
  - PNEUMOTHORAX [None]
  - PNEUMONITIS [None]
  - SUPRAVENTRICULAR TACHYCARDIA [None]
  - PYREXIA [None]
